FAERS Safety Report 4523170-3 (Version None)
Quarter: 2004Q4

REPORT INFORMATION
  Report Type: 
  Country: None (occurrence: None)
  Receive Date: 20041208
  Receipt Date: 20041130
  Transmission Date: 20050328
  Serious: Yes (Hospitalization)
  Sender: FDA-Public Use
  Company Number: 2004SE06650

PATIENT
  Age: 68 Year
  Sex: Male

DRUGS (1)
  1. BLOPRESS [Suspect]
     Indication: HYPERTENSION
     Dates: start: 20040901, end: 20041101

REACTIONS (1)
  - INTERSTITIAL LUNG DISEASE [None]
